FAERS Safety Report 12987761 (Version 1)
Quarter: 2016Q4

REPORT INFORMATION
  Report Type: Spontaneous
  Country: US (occurrence: US)
  Receive Date: 20161130
  Receipt Date: 20161130
  Transmission Date: 20170207
  Serious: No
  Sender: FDA-Public Use
  Company Number: None

PATIENT
  Age: 70 Year
  Sex: Male
  Weight: 77.11 kg

DRUGS (4)
  1. VALPROIC ACID SYRUP 250 MG/5 ML [Concomitant]
     Active Substance: VALPROIC ACID
  2. XENAZINE [Concomitant]
     Active Substance: TETRABENAZINE
  3. NAMENDA [Concomitant]
     Active Substance: MEMANTINE HYDROCHLORIDE
  4. HALDOL [Suspect]
     Active Substance: HALOPERIDOL
     Indication: TOURETTE^S DISORDER
     Dosage: 1 TWICE DAY MOUTH
     Route: 048
     Dates: start: 1970, end: 2013

REACTIONS (2)
  - Gait disturbance [None]
  - Dyskinesia [None]
